FAERS Safety Report 13726948 (Version 1)
Quarter: 2017Q3

REPORT INFORMATION
  Report Type: Report from Study
  Country: US (occurrence: US)
  Receive Date: 20170707
  Receipt Date: 20170707
  Transmission Date: 20171127
  Serious: Yes (Other)
  Sender: FDA-Public Use
  Company Number: US-ASTRAZENECA-2017SE41345

PATIENT
  Age: 22674 Day
  Sex: Female

DRUGS (10)
  1. LYNPARZA [Suspect]
     Active Substance: OLAPARIB
     Indication: OVARIAN CANCER
     Dosage: 8 CAPSULES, TWICE DAILY
     Route: 048
     Dates: start: 20170412, end: 20170525
  2. FLUTICASONE. [Concomitant]
     Active Substance: FLUTICASONE
  3. OSELTAMIVIR [Concomitant]
     Active Substance: OSELTAMIVIR
  4. ADVAIR HFA [Concomitant]
     Active Substance: FLUTICASONE PROPIONATE\SALMETEROL XINAFOATE
     Dosage: BID
  5. PROCHLORPERAZINE. [Concomitant]
     Active Substance: PROCHLORPERAZINE
  6. ALLEGRA [Concomitant]
     Active Substance: FEXOFENADINE HYDROCHLORIDE
  7. LORAZEPAM. [Concomitant]
     Active Substance: LORAZEPAM
  8. COMPAZINE [Concomitant]
     Active Substance: PROCHLORPERAZINE MALEATE
  9. FLONASE [Concomitant]
     Active Substance: FLUTICASONE PROPIONATE
  10. PANTOPRAZOLE [Concomitant]
     Active Substance: PANTOPRAZOLE

REACTIONS (11)
  - Cystitis [Unknown]
  - Vomiting [Unknown]
  - Appetite disorder [Unknown]
  - Abdominal distension [Unknown]
  - Brain neoplasm malignant [Unknown]
  - Decreased appetite [Unknown]
  - Gastric disorder [Unknown]
  - Neoplasm [Unknown]
  - Confusional state [Unknown]
  - Fatigue [Unknown]
  - Ageusia [Unknown]

NARRATIVE: CASE EVENT DATE: 20170427
